FAERS Safety Report 19501336 (Version 1)
Quarter: 2021Q3

REPORT INFORMATION
  Report Type: Spontaneous
  Country: GB (occurrence: GB)
  Receive Date: 20210707
  Receipt Date: 20210707
  Transmission Date: 20211014
  Serious: Yes (Disabling)
  Sender: FDA-Public Use
  Company Number: GB-TEVA-2021-GB-1930414

PATIENT
  Age: 34 Year
  Sex: Female

DRUGS (1)
  1. VENLAFAXINE [Suspect]
     Active Substance: VENLAFAXINE HYDROCHLORIDE
     Indication: DEPRESSION
     Dosage: 225MG
     Route: 065
     Dates: start: 20180701

REACTIONS (3)
  - Disturbance in attention [Recovered/Resolved]
  - Product dose omission issue [Recovered/Resolved]
  - Breast prosthesis user [Recovered/Resolved]

NARRATIVE: CASE EVENT DATE: 20210301
